FAERS Safety Report 5446386-0 (Version None)
Quarter: 2007Q3

REPORT INFORMATION
  Report Type: 
  Country: None (occurrence: None)
  Receive Date: 20070907
  Receipt Date: 20070829
  Transmission Date: 20080115
  Serious: Yes (Hospitalization)
  Sender: FDA-Public Use
  Company Number: B0486089A

PATIENT
  Age: 55 Year
  Sex: Female

DRUGS (3)
  1. AUGMENTIN '125' [Suspect]
     Indication: COUGH
     Route: 048
     Dates: start: 20070625
  2. SERESTA [Suspect]
     Dosage: 25MG TWICE PER DAY
     Route: 048
  3. LARGACTIL [Suspect]
     Dosage: 15DROP PER DAY
     Route: 048

REACTIONS (6)
  - ANAEMIA [None]
  - ASCITES [None]
  - CLOSTRIDIUM DIFFICILE COLITIS [None]
  - DIARRHOEA [None]
  - MELAENA [None]
  - OEDEMA [None]
